FAERS Safety Report 11578367 (Version 1)
Quarter: 2015Q3

REPORT INFORMATION
  Report Type: Spontaneous
  Country: US (occurrence: US)
  Receive Date: 20150930
  Receipt Date: 20150930
  Transmission Date: 20151125
  Serious: No
  Sender: FDA-Public Use
  Company Number: US-ELI_LILLY_AND_COMPANY-US201509009296

PATIENT
  Sex: Female

DRUGS (2)
  1. HUMALOG [Suspect]
     Active Substance: INSULIN LISPRO
     Indication: TYPE 2 DIABETES MELLITUS
     Dosage: 30 U, BID
     Route: 065
     Dates: start: 201505
  2. HUMALOG [Suspect]
     Active Substance: INSULIN LISPRO
     Dosage: 15 U, QD
     Route: 065
     Dates: start: 201505

REACTIONS (2)
  - Blood glucose increased [Unknown]
  - Confusional state [Unknown]

NARRATIVE: CASE EVENT DATE: 20150928
